FAERS Safety Report 9178902 (Version 1)
Quarter: 2012Q4

REPORT INFORMATION
  Report Type: 
  Country: US (occurrence: US)
  Receive Date: 20121029
  Receipt Date: 20121029
  Transmission Date: 20130627
  Serious: Yes (Hospitalization)
  Sender: FDA-Public Use
  Company Number: US-JNJFOC-20121013036

PATIENT
  Age: 80 Year
  Sex: Female

DRUGS (2)
  1. ZYRTEC IR [Suspect]
     Route: 048
  2. ZYRTEC IR [Suspect]
     Indication: MULTIPLE ALLERGIES
     Route: 048

REACTIONS (4)
  - Respiratory distress [Recovered/Resolved]
  - Anxiety [Recovered/Resolved]
  - Product packaging issue [Unknown]
  - Drug administered to patient of inappropriate age [Unknown]
